FAERS Safety Report 10395350 (Version 1)
Quarter: 2014Q3

REPORT INFORMATION
  Report Type: Spontaneous
  Country: US (occurrence: US)
  Receive Date: 20140820
  Receipt Date: 20140820
  Transmission Date: 20150326
  Serious: No
  Sender: FDA-Public Use
  Company Number: US-PFIZER INC-2014231627

PATIENT
  Age: 86 Year
  Sex: Female

DRUGS (2)
  1. CELEBREX [Suspect]
     Active Substance: CELECOXIB
     Indication: ARTHRALGIA
     Dosage: 200 MG, DAILY
     Dates: end: 20140526
  2. NEXIUM [Concomitant]
     Active Substance: ESOMEPRAZOLE MAGNESIUM
     Dosage: 40 MG, DAILY

REACTIONS (3)
  - Joint swelling [Recovering/Resolving]
  - Pain [Unknown]
  - Gait disturbance [Unknown]

NARRATIVE: CASE EVENT DATE: 2014
